FAERS Safety Report 7393824-2 (Version None)
Quarter: 2011Q2

REPORT INFORMATION
  Report Type: 
  Country: None (occurrence: None)
  Receive Date: 20110405
  Receipt Date: 20110325
  Transmission Date: 20111010
  Serious: Yes (Hospitalization)
  Sender: FDA-Public Use
  Company Number: JP-BAYER-201010372BYL

PATIENT
  Sex: Female
  Weight: 61.7 kg

DRUGS (16)
  1. SORAFENIB (RAF KINASE INHIBITOR) [Suspect]
     Dosage: UNK
     Route: 048
     Dates: start: 20100508, end: 20110311
  2. DIOVAN [Concomitant]
     Indication: HYPERTENSION
     Dosage: 80 MG (DAILY DOSE), , ORAL
     Route: 048
     Dates: start: 20080301
  3. AMLODIN [Concomitant]
     Indication: HYPERTENSION
     Dosage: 5 MG (DAILY DOSE), , ORAL
     Route: 048
     Dates: start: 20100115
  4. AMLODIN [Concomitant]
     Route: 048
     Dates: start: 20100123
  5. ADALAT CC [Concomitant]
     Indication: HYPERTENSION
     Route: 048
     Dates: start: 20100327, end: 20100418
  6. SORAFENIB (RAF KINASE INHIBITOR) [Suspect]
     Indication: METASTATIC RENAL CELL CARCINOMA
     Route: 048
     Dates: start: 20100115, end: 20100128
  7. STOMARCON [Concomitant]
     Indication: GASTRITIS PROPHYLAXIS
     Route: 048
  8. DIOVAN [Concomitant]
     Route: 048
     Dates: start: 20100124, end: 20100412
  9. PREDNISOLONE [Concomitant]
     Indication: ADRENOCORTICAL STEROID THERAPY
     Route: 048
     Dates: start: 20100115
  10. CORTRIL [Concomitant]
     Indication: ADRENOCORTICAL STEROID THERAPY
     Route: 048
     Dates: start: 20070101
  11. KINDAVATE [Concomitant]
     Indication: RASH
     Dosage: AS NEEDED
     Route: 061
     Dates: start: 20100122
  12. MAGMITT [Concomitant]
     Indication: CONSTIPATION PROPHYLAXIS
     Dosage: AS NEEDED
     Route: 048
  13. HIRUDOID [Concomitant]
     Indication: PROPHYLAXIS
     Dosage: AS NEEDED
     Route: 061
     Dates: start: 20100115
  14. SORAFENIB (RAF KINASE INHIBITOR) [Suspect]
     Route: 048
     Dates: start: 20100213, end: 20100412
  15. GASTER D [Concomitant]
     Indication: GASTRITIS PROPHYLAXIS
     Route: 048
     Dates: start: 20100204
  16. URSO 250 [Concomitant]
     Indication: HEPATIC FUNCTION ABNORMAL
     Dosage: 300 MG (DAILY DOSE), TID, ORAL
     Route: 048
     Dates: start: 20100326

REACTIONS (10)
  - ALANINE AMINOTRANSFERASE INCREASED [None]
  - HERPES ZOSTER [None]
  - ADRENAL INSUFFICIENCY [None]
  - ELECTROLYTE DEPLETION [None]
  - GAMMA-GLUTAMYLTRANSFERASE INCREASED [None]
  - BLOOD LACTATE DEHYDROGENASE INCREASED [None]
  - BLOOD ALKALINE PHOSPHATASE INCREASED [None]
  - ASPARTATE AMINOTRANSFERASE INCREASED [None]
  - DIARRHOEA [None]
  - DECREASED APPETITE [None]
